FAERS Safety Report 7636379-7 (Version None)
Quarter: 2011Q3

REPORT INFORMATION
  Report Type: 
  Country: None (occurrence: None)
  Receive Date: 20110726
  Receipt Date: 20110715
  Transmission Date: 20111222
  Serious: Yes (Hospitalization)
  Sender: FDA-Public Use
  Company Number: ES-GLAXOSMITHKLINE-B0734778A

PATIENT
  Age: 76 Year
  Sex: Male

DRUGS (6)
  1. DUTASTERIDE/TAMSULOSIN HYDROCHLORIDE [Suspect]
     Indication: PRODUCT USED FOR UNKNOWN INDICATION
     Route: 048
     Dates: start: 20110330, end: 20110608
  2. LEVOSULPIRIDE [Concomitant]
     Route: 048
     Dates: start: 20070101, end: 20110608
  3. UNKNOWN DRUG [Concomitant]
     Route: 048
     Dates: start: 20060201, end: 20110608
  4. ZOMARIST [Suspect]
     Indication: PRODUCT USED FOR UNKNOWN INDICATION
     Route: 048
     Dates: start: 20110504, end: 20110608
  5. GLYBURIDE [Concomitant]
     Route: 048
     Dates: start: 20060101, end: 20110608
  6. OMEPRAZOLE [Concomitant]
     Route: 048
     Dates: start: 20061101, end: 20110608

REACTIONS (1)
  - PANCREATITIS [None]
